FAERS Safety Report 23967431 (Version 1)
Quarter: 2024Q2

REPORT INFORMATION
  Report Type: Spontaneous
  Country: IT (occurrence: IT)
  Receive Date: 20240612
  Receipt Date: 20240612
  Transmission Date: 20240716
  Serious: Yes (Other)
  Sender: FDA-Public Use
  Company Number: None

PATIENT
  Age: 46 Year
  Sex: Male

DRUGS (1)
  1. IBUPROFEN [Suspect]
     Active Substance: IBUPROFEN
     Indication: Groin pain
     Dosage: 1 DOSAGE FORM, TOTAL, 1 TABLET.
     Route: 048
     Dates: start: 20240418, end: 20240418

REACTIONS (4)
  - Pain [Recovered/Resolved]
  - Malaise [Recovered/Resolved]
  - Drug hypersensitivity [Recovered/Resolved]
  - Diarrhoea [Recovered/Resolved]

NARRATIVE: CASE EVENT DATE: 20240418
